FAERS Safety Report 6554424-7 (Version None)
Quarter: 2010Q1

REPORT INFORMATION
  Report Type: 
  Country: None (occurrence: None)
  Receive Date: 20100127
  Receipt Date: 20100120
  Transmission Date: 20100710
  Serious: Yes (Congenital Anomaly)
  Sender: FDA-Public Use
  Company Number: GXKR2010GB00996

PATIENT
  Sex: Male
  Weight: 2.52 kg

DRUGS (2)
  1. LAMOTRIGINE (NGX) [Suspect]
     Dosage: MATERNAL DOSE: TWICE A DAY
     Route: 064
  2. FOLIC ACID [Concomitant]
     Dosage: MATERNAL DOSE: 5 MG
     Route: 064
     Dates: start: 20010401

REACTIONS (5)
  - BODY DYSMORPHIC DISORDER [None]
  - DEAFNESS UNILATERAL [None]
  - DEVELOPMENTAL DELAY [None]
  - DRUG EXPOSURE DURING PREGNANCY [None]
  - HYDRONEPHROSIS [None]
